FAERS Safety Report 23530272 (Version 1)
Quarter: 2024Q1

REPORT INFORMATION
  Report Type: Spontaneous
  Country: JP (occurrence: JP)
  Receive Date: 20240216
  Receipt Date: 20240216
  Transmission Date: 20240410
  Serious: Yes (Other)
  Sender: FDA-Public Use
  Company Number: JP-aspen-SDZ2023JP003097AA

PATIENT
  Age: 77 Year
  Sex: Male

DRUGS (1)
  1. XYLOCAINE [Suspect]
     Active Substance: LIDOCAINE HYDROCHLORIDE
     Indication: Anaesthesia procedure
     Dosage: UNK
     Route: 065

REACTIONS (1)
  - Laryngospasm [Unknown]
